FAERS Safety Report 25303509 (Version 1)
Quarter: 2025Q2

REPORT INFORMATION
  Report Type: Spontaneous
  Country: US (occurrence: US)
  Receive Date: 20250513
  Receipt Date: 20250513
  Transmission Date: 20250717
  Serious: No
  Sender: UCB
  Company Number: US-UCBSA-2024067763

PATIENT
  Sex: Female

DRUGS (2)
  1. CIMZIA [Suspect]
     Active Substance: CERTOLIZUMAB PEGOL
     Indication: Psoriasis
     Dosage: 400 MILLIGRAM, EV 4 WEEKS
     Route: 058
     Dates: start: 202008
  2. MUPIROCIN [Concomitant]
     Active Substance: MUPIROCIN
     Indication: Impetigo

REACTIONS (6)
  - Nasopharyngitis [Unknown]
  - Psoriasis [Unknown]
  - Impetigo [Unknown]
  - Malaise [Unknown]
  - Insurance issue [Unknown]
  - Inappropriate schedule of product administration [Unknown]

NARRATIVE: CASE EVENT DATE: 20240101
